FAERS Safety Report 4343131-7 (Version None)
Quarter: 2004Q2

REPORT INFORMATION
  Report Type: 
  Country: None (occurrence: None)
  Receive Date: 20040421
  Receipt Date: 20040415
  Transmission Date: 20050107
  Serious: Yes (Hospitalization)
  Sender: FDA-Public Use
  Company Number: FR-GLAXOSMITHKLINE-B0330108A

PATIENT
  Age: 45 Year
  Sex: Female
  Weight: 52 kg

DRUGS (9)
  1. VALACYCLOVIR HCL [Suspect]
     Dosage: 1G PER DAY
     Route: 048
     Dates: start: 20040223
  2. TAVANIC [Suspect]
     Indication: LUNG DISORDER
     Dosage: 1G PER DAY
     Route: 048
     Dates: start: 20040220, end: 20040226
  3. EPIVIR [Concomitant]
  4. SUSTIVA [Concomitant]
  5. VIREAD [Concomitant]
  6. IMODIUM [Concomitant]
  7. DAONIL [Concomitant]
  8. LEVOTHYROXINE SODIUM [Concomitant]
  9. GLUCOPHAGE [Concomitant]

REACTIONS (2)
  - PUPILS UNEQUAL [None]
  - VISION BLURRED [None]
